FAERS Safety Report 10860637 (Version 4)
Quarter: 2016Q1

REPORT INFORMATION
  Report Type: Spontaneous
  Country: CA (occurrence: CA)
  Receive Date: 20150224
  Receipt Date: 20160309
  Transmission Date: 20160525
  Serious: Yes (Other)
  Sender: FDA-Public Use
  Company Number: CA-ROCHE-1542745

PATIENT
  Age: 48 Year
  Sex: Female

DRUGS (11)
  1. XOLAIR [Suspect]
     Active Substance: OMALIZUMAB
     Route: 058
     Dates: start: 20131230
  2. XOLAIR [Suspect]
     Active Substance: OMALIZUMAB
     Route: 058
     Dates: start: 20141229
  3. ALVESCO [Concomitant]
     Active Substance: CICLESONIDE
  4. XOLAIR [Suspect]
     Active Substance: OMALIZUMAB
     Route: 058
     Dates: start: 20130827
  5. ZITHROMAX [Suspect]
     Active Substance: AZITHROMYCIN DIHYDRATE
     Indication: PRODUCT USED FOR UNKNOWN INDICATION
     Route: 065
  6. XOLAIR [Suspect]
     Active Substance: OMALIZUMAB
     Indication: ASTHMA
     Route: 058
     Dates: start: 20130814
  7. XOLAIR [Suspect]
     Active Substance: OMALIZUMAB
     Route: 058
     Dates: start: 20131104
  8. XOLAIR [Suspect]
     Active Substance: OMALIZUMAB
     Route: 058
     Dates: start: 20160108
  9. NASONEX [Concomitant]
     Active Substance: MOMETASONE FUROATE
  10. XOLAIR [Suspect]
     Active Substance: OMALIZUMAB
     Route: 058
     Dates: start: 20130923
  11. ADVAIR HFA [Concomitant]
     Active Substance: FLUTICASONE PROPIONATE\SALMETEROL XINAFOATE

REACTIONS (23)
  - Rhinorrhoea [Unknown]
  - Ligament sprain [Unknown]
  - Torticollis [Unknown]
  - Fatigue [Unknown]
  - Pain in extremity [Recovered/Resolved]
  - Aphonia [Unknown]
  - Bronchitis [Unknown]
  - Haematoma [Unknown]
  - Paronychia [Unknown]
  - Sinusitis [Unknown]
  - Oropharyngeal pain [Recovering/Resolving]
  - Sinus headache [Recovering/Resolving]
  - Nasopharyngitis [Unknown]
  - Weight decreased [Unknown]
  - Fall [Unknown]
  - Sputum discoloured [Unknown]
  - Injection site haematoma [Unknown]
  - Arthralgia [Unknown]
  - Laryngitis [Unknown]
  - Diarrhoea [Unknown]
  - Blood pressure increased [Unknown]
  - Respiratory tract congestion [Recovering/Resolving]
  - Influenza [Unknown]

NARRATIVE: CASE EVENT DATE: 20130923
